FAERS Safety Report 22646222 (Version 1)
Quarter: 2023Q2

REPORT INFORMATION
  Report Type: Spontaneous
  Country: UY (occurrence: None)
  Receive Date: 20230624
  Receipt Date: 20230624
  Transmission Date: 20230722
  Serious: Yes (Other)
  Sender: FDA-Public Use
  Company Number: None

PATIENT
  Age: 34 Year
  Sex: Female
  Weight: 65 kg

DRUGS (2)
  1. TOPIRAMATE [Suspect]
     Active Substance: TOPIRAMATE
     Indication: Migraine
     Dosage: 1 TABLET AT BEDTIME ORAL
     Route: 048
  2. IBUPROFEN WITH CODINE [Concomitant]

REACTIONS (4)
  - Dizziness [None]
  - Diplopia [None]
  - Disturbance in attention [None]
  - Reading disorder [None]

NARRATIVE: CASE EVENT DATE: 20200701
